FAERS Safety Report 10515318 (Version 1)
Quarter: 2014Q4

REPORT INFORMATION
  Report Type: Spontaneous
  Country: VN (occurrence: VN)
  Receive Date: 20141014
  Receipt Date: 20141014
  Transmission Date: 20150528
  Serious: Yes (Hospitalization, Other)
  Sender: FDA-Public Use
  Company Number: VN-009507513-1410VNM003728

PATIENT
  Sex: Female

DRUGS (9)
  1. TRAMADOL HYDROCHLORIDE. [Concomitant]
     Active Substance: TRAMADOL HYDROCHLORIDE
     Dosage: 100 MG X2/DAILY
     Route: 030
     Dates: start: 20141003, end: 20141004
  2. DEXTROSE. [Concomitant]
     Active Substance: DEXTROSE
     Dosage: UNK
     Route: 042
     Dates: start: 20141003
  3. INVANZ [Suspect]
     Active Substance: ERTAPENEM SODIUM
     Indication: URINARY TRACT INFECTION
     Dosage: 1 G, DAILY
     Route: 042
     Dates: start: 20140924, end: 20141003
  4. LIPOSYN [Concomitant]
     Active Substance: SAFFLOWER OIL
     Dosage: 250 MG, UNK
     Route: 042
     Dates: start: 20141003
  5. SINTROM [Concomitant]
     Active Substance: ACENOCOUMAROL
     Dosage: UNK
     Dates: start: 20141003
  6. NITROSTAT [Concomitant]
     Active Substance: NITROGLYCERIN
     Dosage: 2.5 MG X2
     Dates: start: 20141003
  7. TRANSAMIN [Concomitant]
     Active Substance: TRANEXAMIC ACID
     Dosage: 250 MG X2
     Route: 030
     Dates: start: 20141003
  8. SODIUM CHLORIDE. [Concomitant]
     Active Substance: SODIUM CHLORIDE
     Dosage: UNK
     Dates: start: 20141003
  9. POTASSIUM CHLORIDE. [Concomitant]
     Active Substance: POTASSIUM CHLORIDE
     Dosage: UNK
     Dates: start: 20141003

REACTIONS (4)
  - Hallucination [Recovered/Resolved]
  - Renal neoplasm [Unknown]
  - Escherichia infection [Unknown]
  - Renal tumour excision [Unknown]

NARRATIVE: CASE EVENT DATE: 201409
